FAERS Safety Report 7274370-3 (Version None)
Quarter: 2011Q1

REPORT INFORMATION
  Report Type: 
  Country: None (occurrence: None)
  Receive Date: 20110201
  Receipt Date: 20110201
  Transmission Date: 20110831
  Serious: No
  Sender: FDA-Public Use
  Company Number: None

PATIENT
  Sex: Female
  Weight: 60.782 kg

DRUGS (1)
  1. RESTASIS [Suspect]
     Indication: DRY EYE
     Dosage: ONE DROP TWICE DAILY OPHTHALMIC
     Route: 047
     Dates: start: 20110110, end: 20110127

REACTIONS (5)
  - OCULAR HYPERAEMIA [None]
  - FOREIGN BODY SENSATION IN EYES [None]
  - EYE PRURITUS [None]
  - PAIN [None]
  - VISION BLURRED [None]
